FAERS Safety Report 25607472 (Version 1)
Quarter: 2025Q3

REPORT INFORMATION
  Report Type: Spontaneous
  Country: JP (occurrence: JP)
  Receive Date: 20250725
  Receipt Date: 20250725
  Transmission Date: 20251021
  Serious: Yes (Other)
  Sender: The J.Molner Company
  Company Number: JP-THE J. MOLNER COMPANY-202507000035

PATIENT

DRUGS (2)
  1. HYDROCORTISONE BUTYRATE [Suspect]
     Active Substance: HYDROCORTISONE BUTYRATE
     Indication: Lymphocytic hypophysitis
     Route: 065
  2. HYDROCORTISONE BUTYRATE [Suspect]
     Active Substance: HYDROCORTISONE BUTYRATE
     Route: 065

REACTIONS (1)
  - Graves^ disease [Recovered/Resolved]
